FAERS Safety Report 22208319 (Version 1)
Quarter: 2023Q2

REPORT INFORMATION
  Report Type: Spontaneous
  Country: IN (occurrence: IN)
  Receive Date: 20230413
  Receipt Date: 20230413
  Transmission Date: 20230721
  Serious: Yes (Death, Hospitalization)
  Sender: FDA-Public Use
  Company Number: IN-MYLANLABS-2023M1038415

PATIENT
  Age: 76 Year
  Sex: Female

DRUGS (8)
  1. TELMISARTAN [Suspect]
     Active Substance: TELMISARTAN
     Indication: Hypertension
     Dosage: 40 MILLIGRAM, QD
     Route: 065
  2. DOPAMINE [Suspect]
     Active Substance: DOPAMINE HYDROCHLORIDE
     Indication: Hypotension
     Dosage: UNK, INFUSION
     Route: 042
  3. DOPAMINE [Suspect]
     Active Substance: DOPAMINE HYDROCHLORIDE
     Indication: Heart rate decreased
  4. NOREPINEPHRINE [Suspect]
     Active Substance: NOREPINEPHRINE
     Indication: Hypotension
     Dosage: UNK, INFUSION
     Route: 042
  5. NOREPINEPHRINE [Suspect]
     Active Substance: NOREPINEPHRINE
     Indication: Heart rate decreased
  6. ATROPINE [Suspect]
     Active Substance: ATROPINE
     Indication: Heart rate decreased
     Dosage: 0.6 MILLIGRAM
     Route: 042
  7. BUPIVACAINE [Concomitant]
     Active Substance: BUPIVACAINE
     Indication: Spinal anaesthesia
     Dosage: 12 MILLIGRAM
     Route: 065
  8. FENTANYL [Concomitant]
     Active Substance: FENTANYL
     Indication: Spinal anaesthesia
     Dosage: 15 MICROGRAM
     Route: 065

REACTIONS (2)
  - Bone cement implantation syndrome [Fatal]
  - Drug ineffective [Fatal]
